FAERS Safety Report 8603483-6 (Version None)
Quarter: 2012Q3

REPORT INFORMATION
  Report Type: 
  Country: None (occurrence: None)
  Receive Date: 20120817
  Receipt Date: 20120807
  Transmission Date: 20120928
  Serious: Yes (Other)
  Sender: FDA-Public Use
  Company Number: CHPA2012US017851

PATIENT
  Age: 73 Year
  Sex: Female

DRUGS (2)
  1. EX-LAX REG STR CHOCOLATED LAX PCS SEN [Suspect]
     Indication: CONSTIPATION
     Dosage: 1 DF, PRN
     Route: 048
     Dates: start: 19390101
  2. DULCOLAX [Concomitant]
     Indication: CONSTIPATION
     Dosage: UNK, UNK

REACTIONS (3)
  - HAEMORRHOIDS [None]
  - UNDERDOSE [None]
  - EXPIRED DRUG ADMINISTERED [None]
